FAERS Safety Report 17749180 (Version 8)
Quarter: 2020Q4

REPORT INFORMATION
  Report Type: Report from Study
  Country: US (occurrence: US)
  Receive Date: 20200505
  Receipt Date: 20201116
  Transmission Date: 20210113
  Serious: Yes (Other)
  Sender: FDA-Public Use
  Company Number: NVSC2020US121242

PATIENT
  Age: 30 Year
  Sex: Female

DRUGS (3)
  1. COSENTYX [Suspect]
     Active Substance: SECUKINUMAB
     Indication: PSORIASIS
     Dosage: 300 MG, QW
     Route: 058
     Dates: start: 20200501
  2. COSENTYX [Suspect]
     Active Substance: SECUKINUMAB
     Dosage: UNK
     Route: 058
     Dates: start: 20200605
  3. COSENTYX [Suspect]
     Active Substance: SECUKINUMAB
     Dosage: 150 MG, UNKNOWN
     Route: 058
     Dates: end: 20200917

REACTIONS (7)
  - Product supply issue [Unknown]
  - COVID-19 [Recovered/Resolved]
  - Peripheral swelling [Unknown]
  - Skin weeping [Unknown]
  - Dysphonia [Unknown]
  - Drug ineffective [Unknown]
  - Illness [Unknown]

NARRATIVE: CASE EVENT DATE: 20200503
